FAERS Safety Report 11166990 (Version 1)
Quarter: 2015Q2

REPORT INFORMATION
  Report Type: Spontaneous
  Country: US (occurrence: US)
  Receive Date: 20150605
  Receipt Date: 20150605
  Transmission Date: 20150821
  Serious: No
  Sender: FDA-Public Use
  Company Number: US-009507513-1505USA014027

PATIENT
  Age: 22 Year
  Sex: Female
  Weight: 79.37 kg

DRUGS (1)
  1. NUVARING [Suspect]
     Active Substance: ETHINYL ESTRADIOL\ETONOGESTREL
     Indication: CONTRACEPTION
     Dosage: UNK, 3 WEEKS IN/ 1 WEEK OUT
     Route: 067
     Dates: start: 201502

REACTIONS (2)
  - Device expulsion [Unknown]
  - Unintended pregnancy [Unknown]

NARRATIVE: CASE EVENT DATE: 201505
